FAERS Safety Report 7271769-6 (Version None)
Quarter: 2011Q1

REPORT INFORMATION
  Report Type: 
  Country: None (occurrence: None)
  Receive Date: 20110203
  Receipt Date: 20110127
  Transmission Date: 20110831
  Serious: Yes (Hospitalization, Other)
  Sender: FDA-Public Use
  Company Number: AU-JNJFOC-20110105790

PATIENT
  Sex: Female
  Weight: 55 kg

DRUGS (7)
  1. RISPERDAL [Suspect]
     Indication: SCHIZOPHRENIA
     Route: 048
  2. INVEGA SUSTENNA [Suspect]
     Indication: SCHIZOPHRENIA
     Route: 030
  3. RISPERDAL CONSTA [Suspect]
     Indication: SCHIZOPHRENIA
     Route: 030
  4. RISPERDAL [Suspect]
     Route: 048
  5. INVEGA SUSTENNA [Suspect]
     Route: 030
  6. RISPERDAL CONSTA [Suspect]
     Route: 030
  7. INVEGA SUSTENNA [Suspect]
     Route: 030

REACTIONS (6)
  - PSYCHOTIC DISORDER [None]
  - HALLUCINATION, AUDITORY [None]
  - AGITATION [None]
  - IRRITABILITY [None]
  - MENTAL IMPAIRMENT [None]
  - TREATMENT NONCOMPLIANCE [None]
